FAERS Safety Report 13266878 (Version 1)
Quarter: 2017Q1

REPORT INFORMATION
  Report Type: Spontaneous
  Country: FR (occurrence: FR)
  Receive Date: 20170224
  Receipt Date: 20170224
  Transmission Date: 20170428
  Serious: Yes (Hospitalization)
  Sender: FDA-Public Use
  Company Number: FR-ROCHE-1898323

PATIENT
  Age: 69 Year
  Sex: Male

DRUGS (6)
  1. CYAMEMAZINE [Concomitant]
     Active Substance: CYAMEMAZINE
     Dosage: FOR PAST YEAR
     Route: 065
  2. LEXOMIL [Suspect]
     Active Substance: BROMAZEPAM
     Indication: PRODUCT USED FOR UNKNOWN INDICATION
     Dosage: BEFORE --1997
     Route: 048
  3. TRANXENE T-TAB [Suspect]
     Active Substance: CLORAZEPATE DIPOTASSIUM
     Indication: PRODUCT USED FOR UNKNOWN INDICATION
     Dosage: BEFORE --1997
     Route: 048
  4. ZOLOFT [Concomitant]
     Active Substance: SERTRALINE HYDROCHLORIDE
     Dosage: FOR THE PAST 4 YEARS
     Route: 065
  5. VALIUM [Suspect]
     Active Substance: DIAZEPAM
     Indication: PRODUCT USED FOR UNKNOWN INDICATION
     Dosage: BEFORE --1997
     Route: 048
  6. ANAFRANIL [Concomitant]
     Active Substance: CLOMIPRAMINE HYDROCHLORIDE
     Route: 065

REACTIONS (3)
  - Memory impairment [Unknown]
  - Drug dependence [Recovering/Resolving]
  - Fall [Unknown]

NARRATIVE: CASE EVENT DATE: 1997
